FAERS Safety Report 6569563-4 (Version None)
Quarter: 2010Q1

REPORT INFORMATION
  Report Type: 
  Country: None (occurrence: None)
  Receive Date: 20100204
  Receipt Date: 20100127
  Transmission Date: 20100710
  Serious: Yes (Hospitalization)
  Sender: FDA-Public Use
  Company Number: JP-BAYER-200915201BYL

PATIENT
  Age: 74 Year
  Sex: Male

DRUGS (9)
  1. NEXAVAR [Suspect]
     Indication: HEPATIC NEOPLASM MALIGNANT
     Dosage: TOTAL DAILY DOSE: 800 MG  UNIT DOSE: 200 MG
     Route: 048
     Dates: start: 20091203, end: 20091211
  2. AMARYL [Concomitant]
     Indication: DIABETES MELLITUS
     Dosage: UNIT DOSE: 1 MG
     Route: 048
  3. ADALAT CC [Concomitant]
     Indication: HYPERTENSION
     Dosage: UNIT DOSE: 40 MG
     Route: 048
  4. DIOVAN [Concomitant]
     Indication: HYPERTENSION
     Dosage: UNIT DOSE: 40 MG
     Route: 048
  5. URSO 250 [Concomitant]
     Indication: CHRONIC HEPATITIS
     Dosage: UNIT DOSE: 100 MG
     Route: 048
  6. MAGMITT [Concomitant]
     Indication: CONSTIPATION
     Dosage: UNIT DOSE: 250 MG
     Route: 048
  7. GLYCYRON [Concomitant]
     Indication: CHRONIC HEPATITIS
     Dosage: UNIT DOSE: 25 MG
     Route: 048
  8. PURSENNID [Concomitant]
     Indication: CONSTIPATION
     Dosage: UNIT DOSE: 12 MG
     Route: 048
  9. LENDORMIN [Concomitant]
     Indication: INSOMNIA
     Dosage: UNIT DOSE: 0.25 MG
     Route: 048

REACTIONS (1)
  - LIVER CARCINOMA RUPTURED [None]
